FAERS Safety Report 4586468-9 (Version None)
Quarter: 2005Q1

REPORT INFORMATION
  Report Type: 
  Country: None (occurrence: None)
  Receive Date: 20050214
  Receipt Date: 20050131
  Transmission Date: 20050727
  Serious: Yes (Death)
  Sender: FDA-Public Use
  Company Number: T04-USA-08276-01

PATIENT
  Age: 73 Year
  Sex: Female

DRUGS (7)
  1. MEMANTINE HCL [Suspect]
     Indication: DEMENTIA ALZHEIMER'S TYPE
     Dosage: 20 MG QD PO
     Route: 048
     Dates: start: 20031218, end: 20041121
  2. MEMANTINE HCL [Suspect]
     Indication: DEMENTIA ALZHEIMER'S TYPE
     Dosage: 20 MG QD PO
     Route: 048
     Dates: start: 20021219, end: 20031217
  3. MEMANTINE HCL [Suspect]
     Indication: DEMENTIA ALZHEIMER'S TYPE
     Dosage: 20 MG QD PO
     Route: 048
     Dates: start: 20020702, end: 20021218
  4. MEMANTINE HCL [Suspect]
     Indication: DEMENTIA ALZHEIMER'S TYPE
     Dosage: 2 TABLET BID PO
     Route: 048
     Dates: start: 20020601, end: 20020701
  5. CITALOPRAM HYDROBROMIDE [Concomitant]
  6. CARBI LEVO CR-52 [Concomitant]
  7. ROFECOXIB [Concomitant]

REACTIONS (9)
  - ASPIRATION [None]
  - ASTHENIA [None]
  - CACHEXIA [None]
  - CIRCULATORY COLLAPSE [None]
  - DEMENTIA ALZHEIMER'S TYPE [None]
  - DISEASE PROGRESSION [None]
  - MYOCARDIAL INFARCTION [None]
  - PARKINSON'S DISEASE [None]
  - RESPIRATORY ARREST [None]
